FAERS Safety Report 19462596 (Version 2)
Quarter: 2021Q3

REPORT INFORMATION
  Report Type: Spontaneous
  Country: BR (occurrence: BR)
  Receive Date: 20210625
  Receipt Date: 20210923
  Transmission Date: 20211014
  Serious: Yes (Other)
  Sender: FDA-Public Use
  Company Number: BR-BRISTOL-MYERS SQUIBB COMPANY-BMS-2021-060769

PATIENT
  Age: 87 Year
  Sex: Male

DRUGS (4)
  1. OPDIVO [Suspect]
     Active Substance: NIVOLUMAB
     Dosage: +4 CYCLES OF NIVOLUMAB 480MG Q4W
     Route: 065
     Dates: start: 202009
  2. PREDNISONE. [Concomitant]
     Active Substance: PREDNISONE
     Indication: PRODUCT USED FOR UNKNOWN INDICATION
     Dosage: 20 MILLIGRAM
     Route: 065
  3. OPDIVO [Suspect]
     Active Substance: NIVOLUMAB
     Indication: SKIN LESION
     Dosage: 480 MILLIGRAM, Q4WK
     Route: 065
     Dates: start: 202001
  4. OPDIVO [Suspect]
     Active Substance: NIVOLUMAB
     Dosage: 6 CYCLES OF NIVOLUMAB
     Dates: start: 202005

REACTIONS (3)
  - Malignant neoplasm progression [Unknown]
  - Pemphigoid [Unknown]
  - Intentional product use issue [Unknown]
